FAERS Safety Report 6495726-2 (Version None)
Quarter: 2009Q4

REPORT INFORMATION
  Report Type: 
  Country: None (occurrence: None)
  Receive Date: 20091214
  Receipt Date: 20090812
  Transmission Date: 20100525
  Serious: No
  Sender: FDA-Public Use
  Company Number: US-BRISTOL-MYERS SQUIBB COMPANY-14730212

PATIENT
  Age: 42 Year
  Sex: Male

DRUGS (4)
  1. ABILIFY [Suspect]
     Dosage: 1 DF = 1 TABS TOOK WHOLE TAB INSTEAD OF HALF TABS
     Dates: start: 20090723
  2. SEROQUEL [Suspect]
     Dosage: SEROQUELXR
     Dates: end: 20090715
  3. GEODON [Suspect]
  4. PROZAC [Concomitant]

REACTIONS (2)
  - MEDICATION ERROR [None]
  - SWOLLEN TONGUE [None]
